FAERS Safety Report 6543680-7 (Version None)
Quarter: 2010Q1

REPORT INFORMATION
  Report Type: 
  Country: None (occurrence: None)
  Receive Date: 20100120
  Receipt Date: 20100111
  Transmission Date: 20100710
  Serious: Yes (Death, Life-Threatening)
  Sender: FDA-Public Use
  Company Number: GXKR2007GB07007

PATIENT
  Age: 75 Year
  Sex: Male

DRUGS (6)
  1. RAMIPRIL [Suspect]
     Indication: CARDIAC FAILURE
     Dosage: 1.25 MG, UNK
     Route: 048
     Dates: start: 20070723, end: 20070724
  2. ACETYLSALICYLIC ACID [Concomitant]
     Dosage: 75 MG, UNK
     Route: 048
  3. ATORVASTATIN [Concomitant]
     Dosage: 20 MG, UNK
     Route: 048
  4. FUROSEMIDE [Concomitant]
     Dosage: 40 MG, UNK
     Route: 048
  5. IRBESARTAN [Concomitant]
     Dosage: 150 MG, UNK
     Route: 048
  6. SPIRONOLACTONE [Concomitant]
     Indication: CARDIAC FAILURE
     Dosage: 25 MG, UNK
     Route: 048
     Dates: end: 20070723

REACTIONS (4)
  - CARDIAC FAILURE CHRONIC [None]
  - CARDIO-RESPIRATORY ARREST [None]
  - HEPATITIS FULMINANT [None]
  - INTERNATIONAL NORMALISED RATIO INCREASED [None]
